FAERS Safety Report 6438817-4 (Version None)
Quarter: 2009Q4

REPORT INFORMATION
  Report Type: 
  Country: None (occurrence: None)
  Receive Date: 20091113
  Receipt Date: 20091105
  Transmission Date: 20100525
  Serious: Yes (Other)
  Sender: FDA-Public Use
  Company Number: NL-JNJFOC-20091101939

PATIENT
  Sex: Female

DRUGS (3)
  1. RISPERDAL [Suspect]
     Indication: PSYCHOTIC DISORDER
     Route: 065
  2. METOPROLOL TARTRATE [Suspect]
     Indication: DRUG USE FOR UNKNOWN INDICATION
     Route: 048
  3. METAMUCIL [Concomitant]
     Indication: LAXATIVE SUPPORTIVE CARE
     Route: 065

REACTIONS (9)
  - DIZZINESS [None]
  - DRUG WITHDRAWAL SYNDROME [None]
  - FAECAL INCONTINENCE [None]
  - GLUCOSE TOLERANCE IMPAIRED [None]
  - HYPERHIDROSIS [None]
  - HYPERTENSION [None]
  - HYPOTENSION [None]
  - LIVER FUNCTION TEST ABNORMAL [None]
  - TACHYCARDIA [None]
